FAERS Safety Report 5737459-3 (Version None)
Quarter: 2008Q2

REPORT INFORMATION
  Report Type: 
  Country: None (occurrence: None)
  Receive Date: 20080514
  Receipt Date: 20080326
  Transmission Date: 20081010
  Serious: No
  Sender: FDA-Public Use
  Company Number: US-BRISTOL-MYERS SQUIBB COMPANY-14127567

PATIENT
  Age: 78 Year
  Sex: Female
  Weight: 59 kg

DRUGS (1)
  1. IXEMPRA KIT [Suspect]
     Indication: BREAST CANCER METASTATIC

REACTIONS (3)
  - ALOPECIA [None]
  - FATIGUE [None]
  - STOMATITIS [None]
